FAERS Safety Report 7854674-3 (Version None)
Quarter: 2011Q4

REPORT INFORMATION
  Report Type: 
  Country: None (occurrence: None)
  Receive Date: 20111026
  Receipt Date: 20111019
  Transmission Date: 20120403
  Serious: Yes (Hospitalization)
  Sender: FDA-Public Use
  Company Number: BR-MEDIMMUNE-MEDI-0012345

PATIENT
  Sex: Male
  Weight: 6.3 kg

DRUGS (6)
  1. PNEUMOCOCCAL VACCINE [Suspect]
  2. RANITIDINE HYDROCHLORIDE [Concomitant]
     Route: 048
  3. SYNAGIS [Suspect]
     Route: 030
     Dates: start: 20100706, end: 20100706
  4. SYNAGIS [Suspect]
     Dates: start: 20100801, end: 20110901
  5. ROTAVIRUS VACCINE [Suspect]
  6. DOMPERIDONE [Concomitant]
     Route: 048

REACTIONS (5)
  - WEIGHT GAIN POOR [None]
  - BODY HEIGHT BELOW NORMAL [None]
  - HYPOPHAGIA [None]
  - HYPERSENSITIVITY [None]
  - CYANOSIS [None]
